FAERS Safety Report 9105206 (Version 1)
Quarter: 2013Q1

REPORT INFORMATION
  Report Type: Spontaneous
  Country: ES (occurrence: ES)
  Receive Date: 20130220
  Receipt Date: 20130220
  Transmission Date: 20140127
  Serious: Yes (Life-Threatening, Hospitalization, Other)
  Sender: FDA-Public Use
  Company Number: ES-BAYER-2013-021807

PATIENT
  Age: 76 Year
  Sex: Female

DRUGS (3)
  1. ACETYLSALICYLIC ACID [Suspect]
     Indication: ISCHAEMIC STROKE
     Dosage: DAILY DOSE 300 MG
     Dates: start: 200907
  2. HEPARIN [Suspect]
     Indication: ISCHAEMIC STROKE
     Dosage: UNK
     Dates: start: 200907
  3. RECOMBINANT TISSULAR PLASMINOGEN [Suspect]
     Indication: ISCHAEMIC STROKE
     Dosage: 63 MG, UNK
     Route: 042
     Dates: start: 20090702

REACTIONS (5)
  - Pulmonary embolism [Recovered/Resolved]
  - Drug dispensing error [None]
  - Atrial fibrillation [None]
  - Loss of consciousness [None]
  - Haemodynamic instability [None]
